FAERS Safety Report 20931457 (Version 1)
Quarter: 2022Q2

REPORT INFORMATION
  Report Type: Spontaneous
  Country: US (occurrence: None)
  Receive Date: 20220607
  Receipt Date: 20220607
  Transmission Date: 20220720
  Serious: Yes (Other)
  Sender: FDA-Public Use
  Company Number: None

PATIENT
  Age: 53 Year
  Sex: Male
  Weight: 86.85 kg

DRUGS (1)
  1. CAPECITABINE [Suspect]
     Active Substance: CAPECITABINE
     Indication: Colon cancer
     Dosage: FREQUENCY : TWICE A DAY;?
     Route: 048
     Dates: start: 20220127, end: 20220504

REACTIONS (6)
  - Palmar-plantar erythrodysaesthesia syndrome [None]
  - Dry skin [None]
  - Gait disturbance [None]
  - Feeling cold [None]
  - Neuropathy peripheral [None]
  - Skin hyperpigmentation [None]

NARRATIVE: CASE EVENT DATE: 20220404
